FAERS Safety Report 6154735-3 (Version None)
Quarter: 2009Q2

REPORT INFORMATION
  Report Type: 
  Country: None (occurrence: None)
  Receive Date: 20090414
  Receipt Date: 20090407
  Transmission Date: 20091009
  Serious: Yes (Hospitalization)
  Sender: FDA-Public Use
  Company Number: B0568908A

PATIENT
  Sex: Female

DRUGS (3)
  1. DEROXAT [Suspect]
     Indication: DRUG USE FOR UNKNOWN INDICATION
     Route: 048
     Dates: start: 20080801
  2. ALEPSAL [Concomitant]
     Indication: EPILEPSY
     Route: 065
  3. BEFIZAL [Concomitant]
     Route: 065

REACTIONS (3)
  - EPILEPSY [None]
  - MYOCLONUS [None]
  - TONIC CLONIC MOVEMENTS [None]
